FAERS Safety Report 9450608 (Version 1)
Quarter: 2013Q3

REPORT INFORMATION
  Report Type: Spontaneous
  Country: BR (occurrence: BR)
  Receive Date: 20130809
  Receipt Date: 20130809
  Transmission Date: 20140515
  Serious: Yes (Hospitalization)
  Sender: FDA-Public Use
  Company Number: BR-SANOFI-AVENTIS-2013SA077734

PATIENT
  Age: 36 Year
  Sex: Female
  Weight: 59 kg

DRUGS (4)
  1. CLEXANE [Suspect]
     Indication: ANTIPHOSPHOLIPID SYNDROME
     Dosage: DURATION UNKNOWN
     Route: 065
     Dates: start: 2011, end: 2011
  2. CLEXANE [Suspect]
     Indication: ANTIPHOSPHOLIPID SYNDROME
     Route: 065
  3. MULTIVITAMINS [Concomitant]
  4. SYNTHROID [Concomitant]
     Indication: HYPOTHYROIDISM

REACTIONS (3)
  - Amniotic fluid volume decreased [Unknown]
  - Exposure during pregnancy [Unknown]
  - Foetal placental thrombosis [Unknown]
